FAERS Safety Report 14762590 (Version 1)
Quarter: 2018Q2

REPORT INFORMATION
  Report Type: Spontaneous
  Country: US (occurrence: US)
  Receive Date: 20180409
  Receipt Date: 20180409
  Transmission Date: 20180711
  Serious: Yes (Death, Hospitalization)
  Sender: FDA-Public Use
  Company Number: None

PATIENT
  Age: 78 Year
  Sex: Female
  Weight: 49.05 kg

DRUGS (2)
  1. NUPLAZID [Suspect]
     Active Substance: PIMAVANSERIN TARTRATE
     Indication: PARKINSON^S DISEASE
     Dosage: ?          QUANTITY:1 TABLET(S);?
     Route: 048
  2. DEEP BRAIN STIMULATION IMPLANT [Concomitant]

REACTIONS (5)
  - Seizure [None]
  - Quality of life decreased [None]
  - Hallucination [None]
  - Delusion [None]
  - Blood urine present [None]

NARRATIVE: CASE EVENT DATE: 20180227
